FAERS Safety Report 9888360 (Version 2)
Quarter: 2014Q2

REPORT INFORMATION
  Report Type: Spontaneous
  Country: US (occurrence: US)
  Receive Date: 20140211
  Receipt Date: 20140407
  Transmission Date: 20141212
  Serious: No
  Sender: FDA-Public Use
  Company Number: US-B.I. PHARMACEUTICALS,INC./RIDGEFIELD-2014-BI-05408BP

PATIENT
  Sex: Female
  Weight: 78.47 kg

DRUGS (5)
  1. PRADAXA [Suspect]
     Indication: ATRIAL FIBRILLATION
     Dosage: 300 MG
     Route: 048
     Dates: start: 20140205
  2. CIPRO [Concomitant]
     Route: 065
  3. MSG [Concomitant]
     Route: 065
  4. LARGE AMOUNT POTASSIUM [Concomitant]
     Route: 065
  5. DIO SODIUM INSONATE [Concomitant]
     Route: 065

REACTIONS (2)
  - Malaise [Unknown]
  - Atrial fibrillation [Unknown]
